FAERS Safety Report 22165315 (Version 1)
Quarter: 2023Q2

REPORT INFORMATION
  Report Type: Spontaneous
  Country: JP (occurrence: JP)
  Receive Date: 20230403
  Receipt Date: 20230403
  Transmission Date: 20230722
  Serious: Yes (Hospitalization, Other)
  Sender: FDA-Public Use
  Company Number: JP-SERVIERJAP-S21006826AA

PATIENT

DRUGS (23)
  1. SYMPROIC [Suspect]
     Active Substance: NALDEMEDINE
     Indication: Product used for unknown indication
     Dosage: UNK UNK, UNKNOWN
     Route: 048
  2. SYMPROIC [Suspect]
     Active Substance: NALDEMEDINE
     Dosage: UNK
     Route: 048
  3. AMITIZA [Suspect]
     Active Substance: LUBIPROSTONE
     Indication: Product used for unknown indication
     Dosage: UNKNOWN, UNKNOWN
     Route: 048
  4. MAGNESIUM OXIDE [Suspect]
     Active Substance: MAGNESIUM OXIDE
     Indication: Product used for unknown indication
     Dosage: UNKNOWN, UNKNOWN
     Route: 048
  5. MAGNESIUM OXIDE [Suspect]
     Active Substance: MAGNESIUM OXIDE
     Dosage: UNK
  6. ONIVYDE [Suspect]
     Active Substance: IRINOTECAN HYDROCHLORIDE
     Indication: Pancreatic carcinoma
     Dosage: 63 MG/M2, QD
     Route: 065
     Dates: start: 20210610, end: 20210610
  7. ONIVYDE [Suspect]
     Active Substance: IRINOTECAN HYDROCHLORIDE
     Dosage: 63 MG/M2, QD
     Route: 065
     Dates: start: 20210624, end: 20210624
  8. ONIVYDE [Suspect]
     Active Substance: IRINOTECAN HYDROCHLORIDE
     Dosage: 63 MG/M2, QD
     Route: 065
     Dates: start: 20210708, end: 20210708
  9. SCOPOLAMINE [Concomitant]
     Active Substance: SCOPOLAMINE
     Indication: Chemotherapy side effect prophylaxis
     Dosage: UNKNOWN, UNKNOWN
     Route: 065
  10. LEVOLEUCOVORIN CALCIUM [Concomitant]
     Active Substance: LEVOLEUCOVORIN CALCIUM
     Indication: Pancreatic carcinoma
     Dosage: 200 MG/M2, QD
     Route: 065
     Dates: start: 20210610, end: 20210610
  11. LEVOLEUCOVORIN CALCIUM [Concomitant]
     Active Substance: LEVOLEUCOVORIN CALCIUM
     Dosage: 200 MG/M2, QD
     Route: 065
     Dates: start: 20210624
  12. LEVOLEUCOVORIN CALCIUM [Concomitant]
     Active Substance: LEVOLEUCOVORIN CALCIUM
     Dosage: 200 MG/M2, QD
     Route: 065
     Dates: start: 20210624, end: 20210624
  13. LEVOLEUCOVORIN CALCIUM [Concomitant]
     Active Substance: LEVOLEUCOVORIN CALCIUM
     Dosage: 200 MG/M2, QD
     Route: 065
     Dates: start: 20210708, end: 20210708
  14. DEXAMETHASONE [Concomitant]
     Active Substance: DEXAMETHASONE
     Indication: Chemotherapy side effect prophylaxis
     Dosage: UNKNOWN, UNKNOWN
     Route: 065
  15. DEXAMETHASONE [Concomitant]
     Active Substance: DEXAMETHASONE
     Dosage: UNK
  16. FLUOROURACIL [Concomitant]
     Active Substance: FLUOROURACIL
     Indication: Pancreatic carcinoma
     Dosage: 2160 MG/M2, QD
     Route: 065
     Dates: start: 20210610, end: 20210610
  17. FLUOROURACIL [Concomitant]
     Active Substance: FLUOROURACIL
     Dosage: 2160 MG/M2, QD
     Route: 065
     Dates: start: 20210624
  18. FLUOROURACIL [Concomitant]
     Active Substance: FLUOROURACIL
     Dosage: 2160 MG/M2, QD
     Route: 065
     Dates: start: 20210610, end: 20210612
  19. FLUOROURACIL [Concomitant]
     Active Substance: FLUOROURACIL
     Dosage: 2160 MG/M2, QD
     Route: 065
     Dates: start: 20210624, end: 20210626
  20. FLUOROURACIL [Concomitant]
     Active Substance: FLUOROURACIL
     Dosage: 2160 MG/M2, QD
     Route: 065
     Dates: start: 20210708, end: 20210710
  21. PALONOSETRON HYDROCHLORIDE [Concomitant]
     Active Substance: PALONOSETRON HYDROCHLORIDE
     Indication: Chemotherapy side effect prophylaxis
     Dosage: UNKNOWN, UNKNOWN
     Route: 065
  22. PALONOSETRON HYDROCHLORIDE [Concomitant]
     Active Substance: PALONOSETRON HYDROCHLORIDE
     Dosage: UNK
  23. BUTYLSCOPOLAMINE BROMIDE [Concomitant]
     Active Substance: BUTYLSCOPOLAMINE BROMIDE
     Indication: Chemotherapy side effect prophylaxis
     Dosage: UNK
     Route: 065

REACTIONS (2)
  - Pulmonary artery thrombosis [Recovering/Resolving]
  - Diarrhoea [Recovered/Resolved]

NARRATIVE: CASE EVENT DATE: 20210610
